FAERS Safety Report 16714784 (Version 1)
Quarter: 2019Q3

REPORT INFORMATION
  Report Type: Spontaneous
  Country: NL (occurrence: NL)
  Receive Date: 20190819
  Receipt Date: 20190819
  Transmission Date: 20191004
  Serious: Yes (Other)
  Sender: FDA-Public Use
  Company Number: PHHY2019NL188811

PATIENT
  Age: 67 Year
  Sex: Male

DRUGS (2)
  1. CIPROFLOXACIN. [Suspect]
     Active Substance: CIPROFLOXACIN
     Indication: PROSTATITIS
     Dosage: UNK
     Route: 065
  2. RIVAROXABAN [Suspect]
     Active Substance: RIVAROXABAN
     Indication: ANTICOAGULANT THERAPY
     Dosage: 2.5 MG, UNK
     Route: 065

REACTIONS (5)
  - Atrial fibrillation [Unknown]
  - Haematuria [Recovered/Resolved]
  - Lung infection [Recovered/Resolved]
  - Systolic hypertension [Unknown]
  - Haematospermia [Recovered/Resolved]
